FAERS Safety Report 8358228 (Version 2)
Quarter: 2013Q1

REPORT INFORMATION
  Report Type: Spontaneous
  Country: US (occurrence: US)
  Receive Date: 20120127
  Receipt Date: 20130301
  Transmission Date: 20140127
  Serious: Yes (Other)
  Sender: FDA-Public Use
  Company Number: US-ROCHE-1033112

PATIENT
  Sex: Male
  Weight: 83.99 kg

DRUGS (2)
  1. ACCUTANE [Suspect]
     Indication: ROSACEA
     Route: 065
     Dates: start: 1992, end: 1996
  2. ACCUTANE [Suspect]
     Route: 065
     Dates: start: 199704, end: 199711

REACTIONS (4)
  - Inflammatory bowel disease [Unknown]
  - Crohn^s disease [Unknown]
  - Depression [Unknown]
  - Injury [Unknown]
